FAERS Safety Report 8134496-9 (Version None)
Quarter: 2012Q1

REPORT INFORMATION
  Report Type: 
  Country: None (occurrence: None)
  Receive Date: 20120214
  Receipt Date: 20120130
  Transmission Date: 20120608
  Serious: Yes (Other)
  Sender: FDA-Public Use
  Company Number: DE-SANOFI-AVENTIS-2012SA006490

PATIENT
  Age: 59 Year
  Sex: Female
  Weight: 80 kg

DRUGS (6)
  1. ALISKIREN [Suspect]
     Indication: HYPERTENSION
     Route: 048
     Dates: start: 20090907
  2. SPIRONOLACTONE [Concomitant]
  3. TELMISARTAN [Concomitant]
  4. DOXAZOSIN [Concomitant]
  5. INDAPAMIDE [Suspect]
     Indication: HYPERTENSION
     Route: 048
     Dates: start: 20080318, end: 20100708
  6. LEVOTHYROXINE SODIUM [Concomitant]

REACTIONS (2)
  - HYPOKALAEMIA [None]
  - BLOOD ALDOSTERONE INCREASED [None]
